FAERS Safety Report 4791436-8 (Version None)
Quarter: 2005Q4

REPORT INFORMATION
  Report Type: 
  Country: None (occurrence: None)
  Receive Date: 20051007
  Receipt Date: 20050630
  Transmission Date: 20060501
  Serious: Yes (Other)
  Sender: FDA-Public Use
  Company Number: US-ROCHE-409746

PATIENT
  Age: 37 Year
  Sex: Female
  Weight: 95.3 kg

DRUGS (2)
  1. PEGASYS [Suspect]
     Indication: HEPATITIS C
     Dosage: DOSAGE REGIMEN REPORTED AS: 1 SHOT PER WEEK.
     Route: 058
     Dates: start: 20050520
  2. COPEGUS [Suspect]
     Indication: HEPATITIS C
     Route: 048
     Dates: start: 20050520

REACTIONS (5)
  - BREAST MASS [None]
  - HYPOAESTHESIA [None]
  - LYMPHADENOPATHY [None]
  - ONYCHOCLASIS [None]
  - PARAESTHESIA [None]
